FAERS Safety Report 5673305-4 (Version None)
Quarter: 2008Q1

REPORT INFORMATION
  Report Type: 
  Country: None (occurrence: None)
  Receive Date: 20080319
  Receipt Date: 20080306
  Transmission Date: 20080703
  Serious: Yes (Hospitalization)
  Sender: FDA-Public Use
  Company Number: US-ELI_LILLY_AND_COMPANY-US200802006209

PATIENT
  Sex: Male
  Weight: 80.5 kg

DRUGS (4)
  1. LISPRO NPL [Suspect]
     Indication: TYPE 1 DIABETES MELLITUS
     Dosage: 42 U, DAILY (1/D)
     Route: 058
     Dates: start: 20071211
  2. LISPRO REGLISPRO [Suspect]
     Indication: TYPE 1 DIABETES MELLITUS
     Dosage: 45 U, DAILY (1/D)
     Route: 058
     Dates: start: 20071211
  3. ALTACE [Concomitant]
     Indication: HYPERTENSION
     Dates: start: 20071212
  4. VYTORIN [Concomitant]
     Indication: HYPERLIPIDAEMIA
     Dates: start: 20040101

REACTIONS (2)
  - ABDOMINAL PAIN [None]
  - NAUSEA [None]
